FAERS Safety Report 17234651 (Version 1)
Quarter: 2020Q1

REPORT INFORMATION
  Report Type: Spontaneous
  Country: US (occurrence: US)
  Receive Date: 20200106
  Receipt Date: 20200106
  Transmission Date: 20200409
  Serious: No
  Sender: FDA-Public Use
  Company Number: US-UCBSA-2014022300

PATIENT
  Age: 37 Year
  Sex: Female

DRUGS (11)
  1. TRILYTE [Concomitant]
     Active Substance: POLYETHYLENE GLYCOL 3350\POTASSIUM CHLORIDE\SODIUM BICARBONATE\SODIUM CHLORIDE
     Indication: PRODUCT USED FOR UNKNOWN INDICATION
     Dosage: 420GM,
     Dates: start: 20141009, end: 20141210
  2. CIMZIA [Suspect]
     Active Substance: CERTOLIZUMAB PEGOL
     Dosage: 400 MG, EV 2 WEEKS(QOW),
     Route: 058
     Dates: start: 2014
  3. BIFERARX [Concomitant]
     Active Substance: CYANOCOBALAMIN\FOLIC ACID\HEME IRON POLYPEPTIDE\IRON DEXTRAN
     Indication: PRODUCT USED FOR UNKNOWN INDICATION
     Dosage: 22MG-6MG-1MG-25MCG, 4X/DAY (QID)
     Dates: start: 20140312
  4. PRENATAL [Concomitant]
     Active Substance: VITAMINS
     Indication: PRODUCT USED FOR UNKNOWN INDICATION
     Dosage: 27MG-0.8MG, 2X/DAY (BID), TAKE ONE TABLET
     Route: 048
     Dates: start: 20140312
  5. FOLIC ACID. [Concomitant]
     Active Substance: FOLIC ACID
     Indication: PRODUCT USED FOR UNKNOWN INDICATION
     Dosage: 1 MG, ONCE DAILY (QD)
     Route: 048
     Dates: start: 20140312
  6. PROBIOTIC [Concomitant]
     Active Substance: PROBIOTICS NOS
     Indication: PRODUCT USED FOR UNKNOWN INDICATION
     Dosage: 10 BILLION CELL CAPSULE
     Dates: start: 20140630, end: 20141210
  7. FISH OIL [Concomitant]
     Active Substance: FISH OIL
     Indication: PRODUCT USED FOR UNKNOWN INDICATION
     Dosage: 100MG-160MG-1000MG CAPSULE
     Dates: start: 20141009, end: 20141210
  8. CIMZIA [Suspect]
     Active Substance: CERTOLIZUMAB PEGOL
     Indication: CROHN^S DISEASE
     Dosage: 400 MG, EV 4 WEEKS, 200MG/ML X 2
     Route: 058
     Dates: start: 2010, end: 2014
  9. LIALDA [Concomitant]
     Active Substance: MESALAMINE
     Indication: PRODUCT USED FOR UNKNOWN INDICATION
     Dosage: 1.2 GM, 4 TABLETS BY MOUTH EVERY MORNING WITH FOOD
     Route: 048
     Dates: start: 20140409, end: 20140409
  10. VITAMIN D3 [Concomitant]
     Active Substance: CHOLECALCIFEROL
     Indication: PRODUCT USED FOR UNKNOWN INDICATION
     Dosage: 400 UNIT CAPSULE
     Dates: start: 20140630
  11. LEVOTHYROXINE. [Concomitant]
     Active Substance: LEVOTHYROXINE
     Indication: PRODUCT USED FOR UNKNOWN INDICATION
     Dosage: 50 ?G, ONCE DAILY (QD)
     Route: 048
     Dates: start: 20140312

REACTIONS (7)
  - Crohn^s disease [Unknown]
  - Maternal exposure during breast feeding [Unknown]
  - Anorectal disorder [Unknown]
  - Off label use [Unknown]
  - Anaemia [Unknown]
  - Thyroid disorder [Unknown]
  - Lyme disease [Unknown]

NARRATIVE: CASE EVENT DATE: 2010
